FAERS Safety Report 25762409 (Version 2)
Quarter: 2025Q3

REPORT INFORMATION
  Report Type: Spontaneous
  Country: EU (occurrence: EU)
  Receive Date: 20250904
  Receipt Date: 20250916
  Transmission Date: 20251021
  Serious: Yes (Other)
  Sender: MYLAN
  Company Number: EU-SANDOZ-SDZ2025FI060326

PATIENT
  Age: 76 Year
  Sex: Female

DRUGS (72)
  1. GABAPENTIN [Suspect]
     Active Substance: GABAPENTIN
     Indication: Product used for unknown indication
  2. GABAPENTIN [Suspect]
     Active Substance: GABAPENTIN
     Route: 065
  3. GABAPENTIN [Suspect]
     Active Substance: GABAPENTIN
     Route: 065
  4. GABAPENTIN [Suspect]
     Active Substance: GABAPENTIN
  5. METFORMIN [Suspect]
     Active Substance: METFORMIN HYDROCHLORIDE
     Indication: Product used for unknown indication
     Dosage: 2 DOSAGE FORM, QD (1 TABLET IN THE MORNING AND EVENING)
  6. METFORMIN [Suspect]
     Active Substance: METFORMIN HYDROCHLORIDE
     Dosage: 2 DOSAGE FORM, QD (1 TABLET IN THE MORNING AND EVENING)
     Route: 065
  7. METFORMIN [Suspect]
     Active Substance: METFORMIN HYDROCHLORIDE
     Dosage: 2 DOSAGE FORM, QD (1 TABLET IN THE MORNING AND EVENING)
     Route: 065
  8. METFORMIN [Suspect]
     Active Substance: METFORMIN HYDROCHLORIDE
     Dosage: 2 DOSAGE FORM, QD (1 TABLET IN THE MORNING AND EVENING)
  9. ATORVASTATIN [Suspect]
     Active Substance: ATORVASTATIN
     Indication: Blood cholesterol abnormal
     Dosage: 20 MILLIGRAM, QD (20 MG CHOLESTEROL MEDICATION IN THE EVENING)
     Dates: start: 2024
  10. ATORVASTATIN [Suspect]
     Active Substance: ATORVASTATIN
     Dosage: 20 MILLIGRAM, QD (20 MG CHOLESTEROL MEDICATION IN THE EVENING)
     Route: 065
     Dates: start: 2024
  11. ATORVASTATIN [Suspect]
     Active Substance: ATORVASTATIN
     Dosage: 20 MILLIGRAM, QD (20 MG CHOLESTEROL MEDICATION IN THE EVENING)
     Route: 065
     Dates: start: 2024
  12. ATORVASTATIN [Suspect]
     Active Substance: ATORVASTATIN
     Dosage: 20 MILLIGRAM, QD (20 MG CHOLESTEROL MEDICATION IN THE EVENING)
     Dates: start: 2024
  13. LOSARTAN POTASSIUM [Suspect]
     Active Substance: LOSARTAN POTASSIUM
     Indication: Hypertension
  14. LOSARTAN POTASSIUM [Suspect]
     Active Substance: LOSARTAN POTASSIUM
     Route: 065
  15. LOSARTAN POTASSIUM [Suspect]
     Active Substance: LOSARTAN POTASSIUM
     Route: 065
  16. LOSARTAN POTASSIUM [Suspect]
     Active Substance: LOSARTAN POTASSIUM
  17. LEVOTHYROXINE SODIUM [Suspect]
     Active Substance: LEVOTHYROXINE SODIUM
     Indication: Hypothyroidism
  18. LEVOTHYROXINE SODIUM [Suspect]
     Active Substance: LEVOTHYROXINE SODIUM
     Route: 065
  19. LEVOTHYROXINE SODIUM [Suspect]
     Active Substance: LEVOTHYROXINE SODIUM
     Route: 065
  20. LEVOTHYROXINE SODIUM [Suspect]
     Active Substance: LEVOTHYROXINE SODIUM
  21. CEPHALEXIN [Suspect]
     Active Substance: CEPHALEXIN
     Indication: Erysipelas
  22. CEPHALEXIN [Suspect]
     Active Substance: CEPHALEXIN
     Route: 065
  23. CEPHALEXIN [Suspect]
     Active Substance: CEPHALEXIN
     Route: 065
  24. CEPHALEXIN [Suspect]
     Active Substance: CEPHALEXIN
  25. CORTISONE [Suspect]
     Active Substance: CORTISONE
     Indication: Product used for unknown indication
  26. CORTISONE [Suspect]
     Active Substance: CORTISONE
     Route: 042
  27. CORTISONE [Suspect]
     Active Substance: CORTISONE
     Route: 042
  28. CORTISONE [Suspect]
     Active Substance: CORTISONE
  29. JANUMET [Suspect]
     Active Substance: METFORMIN HYDROCHLORIDE\SITAGLIPTIN PHOSPHATE
     Indication: Product used for unknown indication
  30. JANUMET [Suspect]
     Active Substance: METFORMIN HYDROCHLORIDE\SITAGLIPTIN PHOSPHATE
     Route: 065
  31. JANUMET [Suspect]
     Active Substance: METFORMIN HYDROCHLORIDE\SITAGLIPTIN PHOSPHATE
     Route: 065
  32. JANUMET [Suspect]
     Active Substance: METFORMIN HYDROCHLORIDE\SITAGLIPTIN PHOSPHATE
  33. PANTOPRAZOLE SODIUM [Suspect]
     Active Substance: PANTOPRAZOLE SODIUM
     Indication: Hypothyroidism
  34. PANTOPRAZOLE SODIUM [Suspect]
     Active Substance: PANTOPRAZOLE SODIUM
     Route: 065
  35. PANTOPRAZOLE SODIUM [Suspect]
     Active Substance: PANTOPRAZOLE SODIUM
     Route: 065
  36. PANTOPRAZOLE SODIUM [Suspect]
     Active Substance: PANTOPRAZOLE SODIUM
  37. POTASSIUM CHLORIDE [Suspect]
     Active Substance: POTASSIUM CHLORIDE
     Indication: Product used for unknown indication
  38. POTASSIUM CHLORIDE [Suspect]
     Active Substance: POTASSIUM CHLORIDE
     Route: 065
  39. POTASSIUM CHLORIDE [Suspect]
     Active Substance: POTASSIUM CHLORIDE
     Route: 065
  40. POTASSIUM CHLORIDE [Suspect]
     Active Substance: POTASSIUM CHLORIDE
  41. CHOLECALCIFEROL [Suspect]
     Active Substance: CHOLECALCIFEROL
     Indication: Product used for unknown indication
  42. CHOLECALCIFEROL [Suspect]
     Active Substance: CHOLECALCIFEROL
     Route: 065
  43. CHOLECALCIFEROL [Suspect]
     Active Substance: CHOLECALCIFEROL
     Route: 065
  44. CHOLECALCIFEROL [Suspect]
     Active Substance: CHOLECALCIFEROL
  45. FUROSEMIDE [Suspect]
     Active Substance: FUROSEMIDE
     Indication: Cardiac failure
  46. FUROSEMIDE [Suspect]
     Active Substance: FUROSEMIDE
     Route: 065
  47. FUROSEMIDE [Suspect]
     Active Substance: FUROSEMIDE
     Route: 065
  48. FUROSEMIDE [Suspect]
     Active Substance: FUROSEMIDE
  49. NOVORAPID [Suspect]
     Active Substance: INSULIN ASPART
     Indication: Product used for unknown indication
  50. NOVORAPID [Suspect]
     Active Substance: INSULIN ASPART
     Route: 065
  51. NOVORAPID [Suspect]
     Active Substance: INSULIN ASPART
     Route: 065
  52. NOVORAPID [Suspect]
     Active Substance: INSULIN ASPART
  53. TRESIBA [Suspect]
     Active Substance: INSULIN DEGLUDEC
     Indication: Product used for unknown indication
  54. TRESIBA [Suspect]
     Active Substance: INSULIN DEGLUDEC
     Route: 065
  55. TRESIBA [Suspect]
     Active Substance: INSULIN DEGLUDEC
     Route: 065
  56. TRESIBA [Suspect]
     Active Substance: INSULIN DEGLUDEC
  57. FERROUS GLYCINE SULFATE [Suspect]
     Active Substance: FERROUS GLYCINE SULFATE
     Indication: Product used for unknown indication
     Dosage: 1 DOSAGE FORM, QOD
  58. FERROUS GLYCINE SULFATE [Suspect]
     Active Substance: FERROUS GLYCINE SULFATE
     Dosage: 1 DOSAGE FORM, QOD
     Route: 065
  59. FERROUS GLYCINE SULFATE [Suspect]
     Active Substance: FERROUS GLYCINE SULFATE
     Dosage: 1 DOSAGE FORM, QOD
     Route: 065
  60. FERROUS GLYCINE SULFATE [Suspect]
     Active Substance: FERROUS GLYCINE SULFATE
     Dosage: 1 DOSAGE FORM, QOD
  61. HYDROCORTISONE BUTYRATE [Suspect]
     Active Substance: HYDROCORTISONE BUTYRATE
     Indication: Product used for unknown indication
  62. HYDROCORTISONE BUTYRATE [Suspect]
     Active Substance: HYDROCORTISONE BUTYRATE
     Route: 065
  63. HYDROCORTISONE BUTYRATE [Suspect]
     Active Substance: HYDROCORTISONE BUTYRATE
     Route: 065
  64. HYDROCORTISONE BUTYRATE [Suspect]
     Active Substance: HYDROCORTISONE BUTYRATE
  65. BUDESONIDE\FORMOTEROL\GLYCOPYRRONIUM [Suspect]
     Active Substance: BUDESONIDE\FORMOTEROL\GLYCOPYRRONIUM
     Indication: Product used for unknown indication
  66. BUDESONIDE\FORMOTEROL\GLYCOPYRRONIUM [Suspect]
     Active Substance: BUDESONIDE\FORMOTEROL\GLYCOPYRRONIUM
     Route: 065
  67. BUDESONIDE\FORMOTEROL\GLYCOPYRRONIUM [Suspect]
     Active Substance: BUDESONIDE\FORMOTEROL\GLYCOPYRRONIUM
     Route: 065
  68. BUDESONIDE\FORMOTEROL\GLYCOPYRRONIUM [Suspect]
     Active Substance: BUDESONIDE\FORMOTEROL\GLYCOPYRRONIUM
  69. CARBOMER [Suspect]
     Active Substance: CARBOMER
     Indication: Product used for unknown indication
  70. CARBOMER [Suspect]
     Active Substance: CARBOMER
     Route: 065
  71. CARBOMER [Suspect]
     Active Substance: CARBOMER
     Route: 065
  72. CARBOMER [Suspect]
     Active Substance: CARBOMER

REACTIONS (13)
  - Gastrointestinal carcinoma [Unknown]
  - Limb operation [Not Recovered/Not Resolved]
  - Diabetes mellitus [Unknown]
  - Pancreatitis [Unknown]
  - Breast cancer [Unknown]
  - Erysipelas [Unknown]
  - Eye pruritus [Unknown]
  - Skin disorder [Unknown]
  - Sleep disorder [Unknown]
  - Blood iron decreased [Unknown]
  - Nerve injury [Unknown]
  - Fatigue [Unknown]
  - Platelet count decreased [Unknown]

NARRATIVE: CASE EVENT DATE: 20250101
